FAERS Safety Report 9133107 (Version 1)
Quarter: 2013Q1

REPORT INFORMATION
  Report Type: Spontaneous
  Country: US (occurrence: US)
  Receive Date: 20130301
  Receipt Date: 20130301
  Transmission Date: 20140127
  Serious: Yes (Life-Threatening)
  Sender: FDA-Public Use
  Company Number: US-B.I. PHARMACEUTICALS,INC./RIDGEFIELD-2013-BI-05526BP

PATIENT
  Sex: 0

DRUGS (1)
  1. PRADAXA [Suspect]
     Dates: end: 2013

REACTIONS (2)
  - Subarachnoid haemorrhage [Unknown]
  - Fall [Unknown]
